FAERS Safety Report 21773391 (Version 1)
Quarter: 2022Q4

REPORT INFORMATION
  Report Type: Spontaneous
  Country: PL (occurrence: PL)
  Receive Date: 20221223
  Receipt Date: 20221223
  Transmission Date: 20230113
  Serious: Yes (Other)
  Sender: FDA-Public Use
  Company Number: PL-VIIV HEALTHCARE LIMITED-PL2022EME188681

PATIENT
  Age: 49 Year
  Sex: Male

DRUGS (12)
  1. RILPIVIRINE [Suspect]
     Active Substance: RILPIVIRINE
     Indication: Antiviral treatment
     Dosage: UNK
     Route: 065
  2. RILPIVIRINE [Suspect]
     Active Substance: RILPIVIRINE
     Dosage: UNK
     Route: 065
  3. RILPIVIRINE [Suspect]
     Active Substance: RILPIVIRINE
     Dosage: UNK
     Route: 065
  4. EDURANT [Suspect]
     Active Substance: RILPIVIRINE HYDROCHLORIDE
     Indication: Antiviral treatment
     Dosage: UNK
     Route: 048
  5. EDURANT [Suspect]
     Active Substance: RILPIVIRINE HYDROCHLORIDE
     Dosage: UNK
     Route: 048
  6. EDURANT [Suspect]
     Active Substance: RILPIVIRINE HYDROCHLORIDE
     Dosage: UNK
     Route: 048
  7. VOCABRIA [Suspect]
     Active Substance: CABOTEGRAVIR SODIUM
     Indication: Antiviral treatment
     Dosage: UNK
     Route: 048
  8. VOCABRIA [Suspect]
     Active Substance: CABOTEGRAVIR SODIUM
     Dosage: UNK
     Route: 048
  9. VOCABRIA [Suspect]
     Active Substance: CABOTEGRAVIR SODIUM
     Dosage: UNK
     Route: 048
  10. VOCABRIA [Suspect]
     Active Substance: CABOTEGRAVIR SODIUM
     Dosage: UNK
     Route: 065
  11. VOCABRIA [Suspect]
     Active Substance: CABOTEGRAVIR SODIUM
     Dosage: UNK
     Route: 065
  12. VOCABRIA [Suspect]
     Active Substance: CABOTEGRAVIR SODIUM
     Dosage: UNK
     Route: 065

REACTIONS (3)
  - Hepatitis B reactivation [Unknown]
  - Alanine aminotransferase increased [Unknown]
  - Aspartate aminotransferase increased [Unknown]
